FAERS Safety Report 9376320 (Version 1)
Quarter: 2013Q3

REPORT INFORMATION
  Report Type: Spontaneous
  Country: AU (occurrence: AU)
  Receive Date: 20130701
  Receipt Date: 20130701
  Transmission Date: 20140515
  Serious: Yes (Other)
  Sender: FDA-Public Use
  Company Number: AU-ROCHE-1242694

PATIENT
  Age: 39 Year
  Sex: Female

DRUGS (6)
  1. OMALIZUMAB [Suspect]
     Indication: PRODUCT USED FOR UNKNOWN INDICATION
     Route: 065
  2. FLUTICASONE PROPIONATE [Concomitant]
  3. MONTELUKAST [Concomitant]
  4. PREDNISOLONE [Concomitant]
  5. SALBUTAMOL [Concomitant]
  6. SALMETEROL XINAFOATE [Concomitant]

REACTIONS (2)
  - Type III immune complex mediated reaction [Unknown]
  - Anaphylactoid reaction [Unknown]
